FAERS Safety Report 9242936 (Version 1)
Quarter: 2013Q2

REPORT INFORMATION
  Report Type: Report from Study
  Country: DE (occurrence: DE)
  Receive Date: 20130419
  Receipt Date: 20130424
  Transmission Date: 20140414
  Serious: Yes (Death, Life-Threatening)
  Sender: FDA-Public Use
  Company Number: PHHO2013DE003227

PATIENT
  Age: 59 Year
  Sex: Male
  Weight: 75 kg

DRUGS (3)
  1. MYCOPHENOLATE MOFETIL [Suspect]
     Indication: LIVER TRANSPLANT
     Dosage: UNK
     Dates: start: 20130207, end: 20130224
  2. PREDNISONE [Suspect]
     Indication: LIVER TRANSPLANT
     Dosage: UNK
     Dates: start: 20130206, end: 20130219
  3. GENERIC CICLOSPORIN [Suspect]
     Indication: LIVER TRANSPLANT
     Dosage: 30 MG
     Dates: start: 20130218, end: 20130308

REACTIONS (2)
  - Multi-organ failure [Fatal]
  - Hypothermia [Recovered/Resolved]
